FAERS Safety Report 8391597-8 (Version None)
Quarter: 2012Q2

REPORT INFORMATION
  Report Type: 
  Country: None (occurrence: None)
  Receive Date: 20120529
  Receipt Date: 20120528
  Transmission Date: 20120825
  Serious: Yes (Other)
  Sender: FDA-Public Use
  Company Number: PHHO2012US002927

PATIENT
  Sex: Male
  Weight: 66 kg

DRUGS (4)
  1. CELEBREX [Concomitant]
     Indication: PAIN
     Dosage: 20 MG, QD
     Route: 048
  2. AFINITOR [Suspect]
     Indication: CARCINOID TUMOUR
     Dosage: 10 MG, UNK
     Route: 048
     Dates: start: 20070614, end: 20120126
  3. AFINITOR [Suspect]
     Dosage: 10 MG, UNK
     Route: 048
     Dates: start: 20120215, end: 20120220
  4. NEXIUM [Concomitant]
     Indication: GASTROOESOPHAGEAL REFLUX DISEASE
     Dosage: 20 MG, QD
     Route: 048

REACTIONS (2)
  - NEOPLASM MALIGNANT [None]
  - ADENOCARCINOMA PANCREAS [None]
